FAERS Safety Report 7195651-8 (Version None)
Quarter: 2010Q4

REPORT INFORMATION
  Report Type: 
  Country: None (occurrence: None)
  Receive Date: 20101223
  Receipt Date: 20101006
  Transmission Date: 20110411
  Serious: No
  Sender: FDA-Public Use
  Company Number: US-AMGEN-KDL443638

PATIENT

DRUGS (13)
  1. ENBREL [Suspect]
     Indication: PSORIASIS
     Dosage: UNK UNK, QWK
  2. ROPINIROLE HYDROCHLORIDE [Concomitant]
     Dosage: .25 MG, UNK
  3. GEODON [Concomitant]
     Dosage: 20 MG, UNK
  4. SERTRALINE HYDROCHLORIDE [Concomitant]
     Dosage: 25 MG, UNK
  5. INSULIN GLARGINE [Concomitant]
     Dosage: UNK UNK, UNK
  6. ATENOLOL [Concomitant]
     Dosage: 25 MG, UNK
  7. NORTRIPTYLINE [Concomitant]
     Dosage: 10 MG, UNK
  8. CLONAZEPAM [Concomitant]
     Dosage: .5 MG, UNK
  9. LISINOPRIL [Concomitant]
     Dosage: 2.5 MG, UNK
  10. SIMVASTATIN [Concomitant]
     Dosage: 5 MG, UNK
  11. INSULIN HUMAN [Concomitant]
     Dosage: UNK UNK, UNK
  12. SUMATRIPTAN [Concomitant]
     Dosage: 25 MG, UNK
  13. LEVOTHYROXINE SODIUM [Concomitant]
     Dosage: 25 A?G, UNK

REACTIONS (1)
  - HEADACHE [None]
